FAERS Safety Report 17839640 (Version 1)
Quarter: 2020Q2

REPORT INFORMATION
  Report Type: Spontaneous
  Country: US (occurrence: US)
  Receive Date: 20200529
  Receipt Date: 20200529
  Transmission Date: 20200714
  Serious: No
  Sender: FDA-Public Use
  Company Number: US-BAYER-2020-097749

PATIENT

DRUGS (1)
  1. MIRALAX [Suspect]
     Active Substance: POLYETHYLENE GLYCOL 3350
     Indication: LARGE INTESTINAL OBSTRUCTION
     Dosage: UNK UNK, QD

REACTIONS (1)
  - Drug effective for unapproved indication [Unknown]
